FAERS Safety Report 7539557-0 (Version None)
Quarter: 2011Q2

REPORT INFORMATION
  Report Type: 
  Country: None (occurrence: None)
  Receive Date: 20110609
  Receipt Date: 20110609
  Transmission Date: 20111010
  Serious: Yes (Other)
  Sender: FDA-Public Use
  Company Number: None

PATIENT
  Age: 47 Year
  Sex: Female
  Weight: 80.7403 kg

DRUGS (1)
  1. SINGULAIR [Suspect]
     Indication: MULTIPLE ALLERGIES
     Dosage: 1 PILL DAILY
     Dates: start: 20110607, end: 20110608

REACTIONS (4)
  - ABNORMAL DREAMS [None]
  - IRRITABILITY [None]
  - DIARRHOEA [None]
  - OROPHARYNGEAL PAIN [None]
